FAERS Safety Report 23441768 (Version 1)
Quarter: 2024Q1

REPORT INFORMATION
  Report Type: Spontaneous
  Country: FR (occurrence: FR)
  Receive Date: 20240125
  Receipt Date: 20240125
  Transmission Date: 20240410
  Serious: Yes (Other)
  Sender: FDA-Public Use
  Company Number: FR-SUN PHARMACEUTICAL INDUSTRIES LTD-2024RR-428414

PATIENT
  Age: 64 Year
  Sex: Female

DRUGS (5)
  1. SERTRALINE [Suspect]
     Active Substance: SERTRALINE HYDROCHLORIDE
     Indication: Wrong patient received product
     Dosage: 325 MILLIGRAM
     Route: 048
     Dates: start: 20230915
  2. LAMOTRIGINE [Suspect]
     Active Substance: LAMOTRIGINE
     Indication: Wrong patient received product
     Dosage: 50 MILLIGRAM
     Route: 048
     Dates: start: 20230915
  3. CLOZAPINE [Suspect]
     Active Substance: CLOZAPINE
     Indication: Wrong patient received product
     Dosage: 25 MILLIGRAM
     Route: 048
     Dates: start: 20230915
  4. OXAZEPAM [Concomitant]
     Active Substance: OXAZEPAM
     Indication: Product used for unknown indication
     Dosage: UNK
     Route: 065
  5. TRAMADOL HYDROCHLORIDE [Concomitant]
     Active Substance: TRAMADOL HYDROCHLORIDE
     Indication: Wrong patient received product
     Dosage: 50 MILLIGRAM
     Route: 048
     Dates: start: 20230915

REACTIONS (4)
  - Bradycardia [Recovered/Resolved]
  - Wrong product administered [Recovered/Resolved]
  - Somnolence [Recovered/Resolved]
  - Hypotension [Recovered/Resolved]

NARRATIVE: CASE EVENT DATE: 20230915
